FAERS Safety Report 19479822 (Version 1)
Quarter: 2021Q2

REPORT INFORMATION
  Report Type: Spontaneous
  Country: US (occurrence: US)
  Receive Date: 20210630
  Receipt Date: 20210630
  Transmission Date: 20210717
  Serious: Yes (Hospitalization)
  Sender: FDA-Public Use
  Company Number: US-GW PHARMA-202106USGW03107

PATIENT

DRUGS (1)
  1. EPIDIOLEX [Suspect]
     Active Substance: CANNABIDIOL
     Indication: LENNOX-GASTAUT SYNDROME
     Dosage: 1400 MILLIGRAM (THE DOSE WAS INCREASED TO 7.5 ML BID. WE HAVE NOT YET SHIPPED THE HIGHER DOSE; UNKNO
     Route: 048
     Dates: start: 201903

REACTIONS (1)
  - Seizure [Unknown]
